FAERS Safety Report 5021313-9 (Version None)
Quarter: 2006Q2

REPORT INFORMATION
  Report Type: 
  Country: None (occurrence: None)
  Receive Date: 20060608
  Receipt Date: 20050429
  Transmission Date: 20061013
  Serious: No
  Sender: FDA-Public Use
  Company Number: US-BRISTOL-MYERS SQUIBB COMPANY-12951489

PATIENT
  Age: 84 Year
  Sex: Female
  Weight: 52 kg

DRUGS (14)
  1. CARBIDOPA + LEVODOPA [Suspect]
     Indication: PARKINSON'S DISEASE
     Route: 048
     Dates: start: 20050101
  2. CARBIDOPA + LEVODOPA [Suspect]
  3. FOSAMAX [Concomitant]
  4. ACCUPRIL [Concomitant]
  5. ZOLOFT [Concomitant]
  6. RISPERDAL [Concomitant]
  7. DIOVAN [Concomitant]
  8. HYDROCHLOROTHIAZIDE [Concomitant]
  9. ASPIRIN [Concomitant]
  10. OS-CAL [Concomitant]
  11. MULTI-VITAMIN [Concomitant]
  12. TOPROL-XL [Concomitant]
  13. HUMALOG [Concomitant]
     Dosage: DOSE VALUE:  PER SLIDING SCALE
     Route: 058
  14. LANTUS [Concomitant]
     Dosage: DOSE VALUE:  SLIDING SCALE
     Route: 058

REACTIONS (2)
  - BLOOD GLUCOSE INCREASED [None]
  - FATIGUE [None]
